FAERS Safety Report 22345441 (Version 1)
Quarter: 2023Q2

REPORT INFORMATION
  Report Type: Spontaneous
  Country: ES (occurrence: ES)
  Receive Date: 20230519
  Receipt Date: 20230519
  Transmission Date: 20230722
  Serious: Yes (Other)
  Sender: FDA-Public Use
  Company Number: ES-002147023-NVSC2023ES071114

PATIENT
  Age: 17 Year
  Sex: Female

DRUGS (5)
  1. SULFASALAZINE [Suspect]
     Active Substance: SULFASALAZINE
     Indication: Sacroiliitis
     Dosage: 500 MG, 3X/DAY
     Route: 065
     Dates: start: 20230203, end: 20230313
  2. CANAKINUMAB [Suspect]
     Active Substance: CANAKINUMAB
     Indication: Brucellosis
     Dosage: 150 MG, MONTHLY
     Route: 058
     Dates: start: 20221117
  3. COLCHICINE [Concomitant]
     Active Substance: COLCHICINE
     Dosage: UNTIL 13 MAR OF UNKNOWN YEAR
     Route: 065
  4. OMEPRAZOLE [Concomitant]
     Active Substance: OMEPRAZOLE
     Dosage: UNK
     Route: 065
  5. PREDNISONE [Concomitant]
     Active Substance: PREDNISONE
     Dosage: 30 MG, QD
     Route: 065

REACTIONS (5)
  - Febrile neutropenia [Recovered/Resolved]
  - Pyrexia [Unknown]
  - Rash [Unknown]
  - Sacroiliitis [Recovered/Resolved]
  - Off label use [Unknown]

NARRATIVE: CASE EVENT DATE: 20221205
